FAERS Safety Report 12384427 (Version 1)
Quarter: 2016Q2

REPORT INFORMATION
  Report Type: Report from Study
  Country: CA (occurrence: CA)
  Receive Date: 20160519
  Receipt Date: 20160519
  Transmission Date: 20160815
  Serious: Yes (Hospitalization)
  Sender: FDA-Public Use
  Company Number: CA-BAYER-2016-089515

PATIENT
  Age: 81 Year
  Sex: Female

DRUGS (15)
  1. DOMPERIDONE [Concomitant]
     Active Substance: DOMPERIDONE
  2. GABAPENTIN. [Concomitant]
     Active Substance: GABAPENTIN
  3. HYDROMORPHONE [Concomitant]
     Active Substance: HYDROMORPHONE
  4. LEVOTHYROXINE. [Concomitant]
     Active Substance: LEVOTHYROXINE
  5. METFORMIN [Concomitant]
     Active Substance: METFORMIN HYDROCHLORIDE
  6. MIRTAZAPINE. [Concomitant]
     Active Substance: MIRTAZAPINE
  7. PANTOPRAZOLE [Concomitant]
     Active Substance: PANTOPRAZOLE SODIUM
  8. FERROUS SULFATE. [Concomitant]
     Active Substance: FERROUS SULFATE
  9. ZOPICLONE [Concomitant]
     Active Substance: ZOPICLONE
  10. ASPIRIN. [Suspect]
     Active Substance: ASPIRIN
     Indication: PRODUCT USED FOR UNKNOWN INDICATION
     Dosage: 81 MG, UNK
  11. OXYCODONE [Concomitant]
     Active Substance: OXYCODONE
  12. LOVENOX [Suspect]
     Active Substance: ENOXAPARIN SODIUM
     Indication: PULMONARY EMBOLISM
     Dosage: 1.0 MG/KG, BID
     Route: 058
  13. VALSARTAN. [Concomitant]
     Active Substance: VALSARTAN
  14. INSULIN ISOPHANE BOVINE [Concomitant]
     Active Substance: INSULIN BEEF
  15. LORAZEPAM. [Concomitant]
     Active Substance: LORAZEPAM

REACTIONS (7)
  - Hypotension [Unknown]
  - Diarrhoea [Unknown]
  - Haemoglobin decreased [Unknown]
  - Vomiting [Unknown]
  - Melaena [Unknown]
  - Haemorrhage [Unknown]
  - Retroperitoneal haematoma [Unknown]
